FAERS Safety Report 13053166 (Version 1)
Quarter: 2016Q4

REPORT INFORMATION
  Report Type: Report from Study
  Country: US (occurrence: US)
  Receive Date: 20161222
  Receipt Date: 20161222
  Transmission Date: 20170207
  Serious: No
  Sender: FDA-Public Use
  Company Number: US-BIOVITRUM-2016US0279

PATIENT
  Sex: Female

DRUGS (1)
  1. KINERET [Suspect]
     Active Substance: ANAKINRA
     Route: 058
     Dates: start: 20160409, end: 20160418

REACTIONS (6)
  - Injection site rash [Unknown]
  - Pain [Unknown]
  - Swelling face [Unknown]
  - Erythema [Unknown]
  - Injection site warmth [Unknown]
  - Injection site mass [Unknown]
